FAERS Safety Report 17096918 (Version 3)
Quarter: 2021Q1

REPORT INFORMATION
  Report Type: Spontaneous
  Country: US (occurrence: US)
  Receive Date: 20191202
  Receipt Date: 20210219
  Transmission Date: 20210419
  Serious: Yes (Other)
  Sender: FDA-Public Use
  Company Number: US-CELGENEUS-USA-20191109787

PATIENT
  Sex: Female

DRUGS (6)
  1. RISPERIDONE. [Concomitant]
     Active Substance: RISPERIDONE
     Indication: PRODUCT USED FOR UNKNOWN INDICATION
     Route: 065
     Dates: start: 201903
  2. HALDOL [Suspect]
     Active Substance: HALOPERIDOL
     Indication: PRODUCT USED FOR UNKNOWN INDICATION
     Dosage: 3 MILLIGRAM
     Route: 065
  3. REVLIMID [Suspect]
     Active Substance: LENALIDOMIDE
     Dosage: 7.5 MILLIGRAM
     Route: 048
     Dates: start: 201810
  4. REVLIMID [Suspect]
     Active Substance: LENALIDOMIDE
     Dosage: 10 MILLIGRAM
     Route: 048
     Dates: start: 201901, end: 2019
  5. REVLIMID [Suspect]
     Active Substance: LENALIDOMIDE
     Dosage: 10 MILLIGRAM
     Route: 048
     Dates: start: 201905
  6. REVLIMID [Suspect]
     Active Substance: LENALIDOMIDE
     Indication: PLASMA CELL MYELOMA
     Dosage: 18.75 MILLIGRAM
     Route: 048
     Dates: start: 20180711

REACTIONS (21)
  - Suicidal ideation [Unknown]
  - Raynaud^s phenomenon [Unknown]
  - Blood potassium decreased [Unknown]
  - Blindness [Not Recovered/Not Resolved]
  - Amnesia [Unknown]
  - Insomnia [Unknown]
  - Rheumatoid arthritis [Unknown]
  - Starvation [Not Recovered/Not Resolved]
  - Irritability [Unknown]
  - Weight decreased [Unknown]
  - Facial paralysis [Unknown]
  - Anxiety [Not Recovered/Not Resolved]
  - Phobia [Unknown]
  - Hyperaesthesia [Unknown]
  - Personality disorder [Unknown]
  - Laboratory test abnormal [Unknown]
  - Vomiting [Unknown]
  - Cardiac failure [Unknown]
  - Euphoric mood [Unknown]
  - Feeling abnormal [Unknown]
  - Nausea [Not Recovered/Not Resolved]

NARRATIVE: CASE EVENT DATE: 2019
